FAERS Safety Report 6554340-0 (Version None)
Quarter: 2010Q1

REPORT INFORMATION
  Report Type: 
  Country: None (occurrence: None)
  Receive Date: 20100127
  Receipt Date: 20100125
  Transmission Date: 20100710
  Serious: Yes (Hospitalization)
  Sender: FDA-Public Use
  Company Number: A0841278A

PATIENT
  Age: 71 Year
  Sex: Female
  Weight: 90.9 kg

DRUGS (1)
  1. AVANDAMET [Suspect]
     Indication: DIABETES MELLITUS
     Dosage: 1TAB PER DAY
     Route: 048
     Dates: end: 20090402

REACTIONS (5)
  - CHEST PAIN [None]
  - CONDITION AGGRAVATED [None]
  - DIABETES MELLITUS [None]
  - MYOCARDIAL INFARCTION [None]
  - VISUAL IMPAIRMENT [None]
